FAERS Safety Report 9833014 (Version 2)
Quarter: 2014Q1

REPORT INFORMATION
  Report Type: Spontaneous
  Country: AR (occurrence: AR)
  Receive Date: 20140121
  Receipt Date: 20140122
  Transmission Date: 20141002
  Serious: Yes (Other)
  Sender: FDA-Public Use
  Company Number: AR-PFIZER INC-2014015329

PATIENT
  Age: 8 Year
  Sex: Female

DRUGS (4)
  1. GENOTROPIN [Suspect]
     Indication: HYPOPITUITARISM
     Dosage: 1 MG, 6X/WEEK
     Route: 058
     Dates: start: 201106, end: 201205
  2. LEVOTHYROXINE [Concomitant]
  3. DESMOPRESSIN [Concomitant]
  4. HYDROCORTISONE [Concomitant]

REACTIONS (2)
  - Craniopharyngioma [Unknown]
  - Disease progression [Unknown]
